FAERS Safety Report 16287629 (Version 2)
Quarter: 2019Q2

REPORT INFORMATION
  Report Type: Spontaneous
  Country: US (occurrence: US)
  Receive Date: 20190508
  Receipt Date: 20190620
  Transmission Date: 20190711
  Serious: Yes (Hospitalization)
  Sender: FDA-Public Use
  Company Number: US-INDIVIOR LIMITED-INDV-119411-2019

PATIENT
  Sex: Male

DRUGS (1)
  1. SUBLOCADE [Suspect]
     Active Substance: BUPRENORPHINE
     Indication: PRODUCT USED FOR UNKNOWN INDICATION
     Dosage: UNK
     Route: 065

REACTIONS (2)
  - Adverse event [Unknown]
  - Drug delivery system removal [Recovered/Resolved]
